FAERS Safety Report 23486419 (Version 2)
Quarter: 2024Q1

REPORT INFORMATION
  Report Type: Spontaneous
  Country: BR (occurrence: BR)
  Receive Date: 20240206
  Receipt Date: 20240209
  Transmission Date: 20240410
  Serious: Yes (Hospitalization, Other)
  Sender: FDA-Public Use
  Company Number: BR-MYLANLABS-2024M1010673

PATIENT
  Age: 79 Year
  Sex: Female
  Weight: 48 kg

DRUGS (9)
  1. VENLAFAXINE HYDROCHLORIDE [Suspect]
     Active Substance: VENLAFAXINE HYDROCHLORIDE
     Indication: Product used for unknown indication
     Dosage: 75 MILLIGRAM, QD
     Route: 065
     Dates: end: 202311
  2. EXELON [Suspect]
     Active Substance: RIVASTIGMINE TARTRATE
     Indication: Dementia with Lewy bodies
     Dosage: 4.6 MILLIGRAM, QD
     Route: 065
     Dates: start: 20231026
  3. EXELON [Suspect]
     Active Substance: RIVASTIGMINE TARTRATE
     Dosage: UNK
     Route: 065
  4. CANNABIDIOL [Suspect]
     Active Substance: CANNABIDIOL
     Indication: Product used for unknown indication
     Dosage: 50 MILLIGRAM, QD
     Route: 065
     Dates: start: 202210
  5. MEMANTINE HYDROCHLORIDE [Concomitant]
     Active Substance: MEMANTINE HYDROCHLORIDE
     Indication: Product used for unknown indication
     Dosage: 10 MILLIGRAM, QD
     Route: 065
  6. COGLIVE [Concomitant]
     Indication: Product used for unknown indication
     Dosage: 16 MILLIGRAM, QD
     Route: 065
     Dates: end: 20231026
  7. MODAFINIL [Concomitant]
     Active Substance: MODAFINIL
     Indication: Product used for unknown indication
     Dosage: 100 MILLIGRAM, QD
     Route: 065
  8. CANNABIDIOL [Concomitant]
     Active Substance: CANNABIDIOL
     Dosage: 0.5 MILLILITER, BID
     Route: 065
     Dates: start: 202207
  9. CANNABIDIOL [Concomitant]
     Active Substance: CANNABIDIOL
     Dosage: 28 MILLIGRAM, QD
     Route: 065

REACTIONS (3)
  - Serotonin syndrome [Unknown]
  - Dementia with Lewy bodies [Unknown]
  - Seizure [Unknown]

NARRATIVE: CASE EVENT DATE: 20231001
